FAERS Safety Report 5890244-4 (Version None)
Quarter: 2008Q3

REPORT INFORMATION
  Report Type: 
  Country: None (occurrence: None)
  Receive Date: 20080919
  Receipt Date: 20080912
  Transmission Date: 20090109
  Serious: Yes (Death, Hospitalization)
  Sender: FDA-Public Use
  Company Number: US-AMGEN-US251285

PATIENT
  Sex: Female

DRUGS (10)
  1. ENBREL [Suspect]
     Indication: RHEUMATOID ARTHRITIS
     Route: 058
     Dates: start: 20030212, end: 20041101
  2. METHOTREXATE [Suspect]
     Route: 048
     Dates: start: 20030401, end: 20041101
  3. PROTONIX [Concomitant]
     Route: 065
  4. WELLBUTRIN [Concomitant]
     Route: 065
  5. PROZAC [Concomitant]
     Route: 065
  6. FOLIC ACID [Concomitant]
     Route: 065
  7. MS CONTIN [Concomitant]
     Route: 065
  8. ADVAIR DISKUS 100/50 [Concomitant]
     Route: 065
  9. ROCEPHIN [Concomitant]
     Route: 042
  10. ZITHROMAX [Concomitant]
     Route: 065

REACTIONS (1)
  - PULMONARY OEDEMA [None]
